FAERS Safety Report 16958157 (Version 1)
Quarter: 2019Q4

REPORT INFORMATION
  Report Type: Spontaneous
  Country: GR (occurrence: GR)
  Receive Date: 20191024
  Receipt Date: 20191024
  Transmission Date: 20200122
  Serious: Yes (Hospitalization)
  Sender: FDA-Public Use
  Company Number: GR-NALPROPION PHARMACEUTICALS INC.-2019-008758

PATIENT

DRUGS (6)
  1. CLONOTRIL [Concomitant]
     Active Substance: CLONAZEPAM
     Indication: TREMOR
     Dosage: UNK
  2. PRIMPERAN [Concomitant]
     Active Substance: METOCLOPRAMIDE HYDROCHLORIDE
     Indication: TREMOR
     Dosage: UNK
  3. EFEXOR [Concomitant]
     Active Substance: VENLAFAXINE HYDROCHLORIDE
     Indication: TREMOR
     Dosage: UNK
  4. ABILIFY [Concomitant]
     Active Substance: ARIPIPRAZOLE
     Indication: TREMOR
     Dosage: 15 MG, UNK
  5. MYSIMBA (NALTREXONE HCL/BUPROPION HCL) PROLONGED-RELEASE TABLETS [Suspect]
     Active Substance: BUPROPION HYDROCHLORIDE\NALTREXONE HYDROCHLORIDE
     Indication: PRODUCT USED FOR UNKNOWN INDICATION
     Dosage: UNK
     Route: 065
     Dates: start: 2018
  6. DEPAKINE                           /00228501/ [Concomitant]
     Active Substance: VALPROIC ACID
     Indication: TREMOR
     Dosage: UNK

REACTIONS (1)
  - Mania [Recovered/Resolved]

NARRATIVE: CASE EVENT DATE: 2018
